FAERS Safety Report 20747215 (Version 1)
Quarter: 2022Q2

REPORT INFORMATION
  Report Type: Spontaneous
  Country: US (occurrence: US)
  Receive Date: 20220425
  Receipt Date: 20220425
  Transmission Date: 20220720
  Serious: Yes (Hospitalization, Other)
  Sender: FDA-Public Use
  Company Number: US-ANIPHARMA-2022-US-009122

PATIENT
  Age: 69 Year
  Sex: Female

DRUGS (1)
  1. TEMOZOLOMIDE [Suspect]
     Active Substance: TEMOZOLOMIDE
     Indication: Pineocytoma
     Dates: start: 2018

REACTIONS (2)
  - Hyponatraemia [Recovered/Resolved]
  - Fatigue [Recovered/Resolved]
